FAERS Safety Report 14918210 (Version 1)
Quarter: 2018Q2

REPORT INFORMATION
  Report Type: Spontaneous
  Country: JP (occurrence: JP)
  Receive Date: 20180521
  Receipt Date: 20180521
  Transmission Date: 20180711
  Serious: Yes (Hospitalization)
  Sender: FDA-Public Use
  Company Number: JP-ABBVIE-18K-087-2362186-00

PATIENT
  Age: 72 Year
  Sex: Male

DRUGS (3)
  1. CARERAM [Suspect]
     Active Substance: IGURATIMOD
     Indication: RHEUMATOID ARTHRITIS
     Route: 048
     Dates: start: 20170822
  2. METHOTREXATE. [Concomitant]
     Active Substance: METHOTREXATE
     Indication: RHEUMATOID ARTHRITIS
     Route: 048
     Dates: start: 2010
  3. HUMIRA [Suspect]
     Active Substance: ADALIMUMAB
     Indication: RHEUMATOID ARTHRITIS
     Route: 058
     Dates: start: 2015

REACTIONS (1)
  - Hepatic cirrhosis [Unknown]

NARRATIVE: CASE EVENT DATE: 2018
